FAERS Safety Report 16306889 (Version 8)
Quarter: 2020Q1

REPORT INFORMATION
  Report Type: Spontaneous
  Country: US (occurrence: US)
  Receive Date: 20190513
  Receipt Date: 20200116
  Transmission Date: 20200409
  Serious: Yes (Hospitalization)
  Sender: FDA-Public Use
  Company Number: US-ACTELION-A-NJ2019-190368

PATIENT
  Sex: Male
  Weight: 89.8 kg

DRUGS (8)
  1. VELETRI [Suspect]
     Active Substance: EPOPROSTENOL
     Dosage: 16 NG/KG, PER MIN
     Route: 042
  2. VELETRI [Suspect]
     Active Substance: EPOPROSTENOL
     Dosage: 20 NG/KG, PER MIN
     Route: 042
  3. VELETRI [Suspect]
     Active Substance: EPOPROSTENOL
     Dosage: 7 NG/KG, PER MIN
     Route: 042
  4. VELETRI [Suspect]
     Active Substance: EPOPROSTENOL
     Dosage: 22 NG/KG, PER MIN
     Route: 042
  5. TADALAFIL. [Concomitant]
     Active Substance: TADALAFIL
  6. VELETRI [Suspect]
     Active Substance: EPOPROSTENOL
     Indication: PULMONARY HYPERTENSION
     Dosage: 6 NG/KG, PER MIN
     Route: 042
  7. AMBRISENTAN [Concomitant]
     Active Substance: AMBRISENTAN
  8. AMLODIPINE [Concomitant]
     Active Substance: AMLODIPINE BESYLATE

REACTIONS (9)
  - Herpes zoster [Unknown]
  - Pain [Unknown]
  - Dyspnoea [Unknown]
  - Headache [Not Recovered/Not Resolved]
  - Pain in jaw [Not Recovered/Not Resolved]
  - Hospitalisation [Unknown]
  - Pneumonia [Unknown]
  - Pulmonary arterial hypertension [Unknown]
  - Hypopnoea [Unknown]
